FAERS Safety Report 24033043 (Version 1)
Quarter: 2024Q3

REPORT INFORMATION
  Report Type: Spontaneous
  Country: FR (occurrence: FR)
  Receive Date: 20240701
  Receipt Date: 20240701
  Transmission Date: 20241017
  Serious: Yes (Hospitalization, Other)
  Sender: SANOFI AVENTIS
  Company Number: None

PATIENT
  Age: 77 Year
  Sex: Female

DRUGS (6)
  1. PREDNISONE [Suspect]
     Active Substance: PREDNISONE
     Indication: Renal transplant
     Dosage: 5 MG, QD (1 TABLET IN THE MORNING 5 MG QD)
     Route: 048
  2. INSULIN GLARGINE [Suspect]
     Active Substance: INSULIN GLARGINE
     Dosage: 8 IU (STARTING AROUND 15 DECEMBER)
     Route: 058
  3. TACROLIMUS [Suspect]
     Active Substance: TACROLIMUS
     Indication: Renal transplant
     Dosage: 0.5 MG, QD (0.5 MG, ORALLY, 1 CAPSULE IN THE MORNING)
     Route: 048
  4. TACROLIMUS [Suspect]
     Active Substance: TACROLIMUS
     Dosage: 1 MG, QD (1 MG, ORALLY, 1 CAPSULE IN THE MORNING)
     Route: 048
  5. BISOPROLOL FUMARATE\HYDROCHLOROTHIAZIDE [Suspect]
     Active Substance: BISOPROLOL FUMARATE\HYDROCHLOROTHIAZIDE
     Dosage: 2.5 MG, QD (1 TABLET IN THE MORNING 2.50 MG QD)
     Route: 048
  6. MYCOPHENOLATE MOFETIL [Suspect]
     Active Substance: MYCOPHENOLATE MOFETIL
     Dosage: 250 MG, BID (1 CAPSULE MORNING AND EVENING; BID 250 MG)
     Route: 048

REACTIONS (9)
  - Cryptosporidiosis infection [Unknown]
  - Hypovolaemic shock [Unknown]
  - Acute kidney injury [Recovered/Resolved]
  - Septic shock [Unknown]
  - Pemphigus [Unknown]
  - Steroid diabetes [Not Recovered/Not Resolved]
  - Leukocytosis [Unknown]
  - Type 2 diabetes mellitus [Not Recovered/Not Resolved]
  - Gout [Unknown]

NARRATIVE: CASE EVENT DATE: 20231215
